FAERS Safety Report 5471125-7 (Version None)
Quarter: 2007Q3

REPORT INFORMATION
  Report Type: 
  Country: None (occurrence: None)
  Receive Date: 20070928
  Receipt Date: 20070926
  Transmission Date: 20080115
  Serious: Yes (Death)
  Sender: FDA-Public Use
  Company Number: US-ASTRAZENECA-2006UW08133

PATIENT
  Age: 72 Year
  Sex: Male
  Weight: 94.1 kg

DRUGS (2)
  1. SEROQUEL [Suspect]
     Indication: ABNORMAL BEHAVIOUR
     Route: 048
     Dates: start: 20050101, end: 20051001
  2. RISPERDAL [Concomitant]
     Dates: start: 20041201

REACTIONS (2)
  - PANCREAS INFECTION [None]
  - PANCREATITIS [None]
